FAERS Safety Report 22254873 (Version 3)
Quarter: 2023Q4

REPORT INFORMATION
  Report Type: Spontaneous
  Country: US (occurrence: US)
  Receive Date: 20230426
  Receipt Date: 20231228
  Transmission Date: 20240110
  Serious: No
  Sender: FDA-Public Use
  Company Number: US-PFIZER INC-202300165052

PATIENT
  Age: 61 Year
  Sex: Female

DRUGS (1)
  1. XELJANZ XR [Suspect]
     Active Substance: TOFACITINIB CITRATE
     Dosage: 11 MG
     Dates: start: 202303

REACTIONS (5)
  - Illness [Unknown]
  - Drug ineffective [Unknown]
  - Discomfort [Unknown]
  - Back pain [Unknown]
  - Nasopharyngitis [Unknown]
